FAERS Safety Report 19357912 (Version 2)
Quarter: 2021Q2

REPORT INFORMATION
  Report Type: Spontaneous
  Country: US (occurrence: US)
  Receive Date: 20210602
  Receipt Date: 20210622
  Transmission Date: 20210717
  Serious: No
  Sender: FDA-Public Use
  Company Number: US-BAYER-2021-148119

PATIENT
  Age: 53 Year
  Sex: Female

DRUGS (1)
  1. SKYLA [Suspect]
     Active Substance: LEVONORGESTREL
     Indication: HEAVY MENSTRUAL BLEEDING
     Dosage: 14 ?G PER DAY CONTINUOUSLY
     Route: 015
     Dates: start: 20210215

REACTIONS (2)
  - Off label use of device [None]
  - Drug ineffective for unapproved indication [None]

NARRATIVE: CASE EVENT DATE: 20210215
